FAERS Safety Report 8457995-9 (Version None)
Quarter: 2012Q2

REPORT INFORMATION
  Report Type: 
  Country: None (occurrence: None)
  Receive Date: 20120615
  Receipt Date: 20120613
  Transmission Date: 20120825
  Serious: Yes (Other)
  Sender: FDA-Public Use
  Company Number: ADR-2011-10944

PATIENT
  Sex: Female

DRUGS (1)
  1. LIORESAL [Suspect]
     Indication: MUSCLE SPASTICITY
     Dosage: 315.2 MCG, DAILY, INTRA
     Route: 037

REACTIONS (4)
  - DIPLOPIA [None]
  - ANXIETY [None]
  - EUSTACHIAN TUBE DYSFUNCTION [None]
  - DEPRESSION [None]
